FAERS Safety Report 14003318 (Version 5)
Quarter: 2017Q4

REPORT INFORMATION
  Report Type: Spontaneous
  Country: US (occurrence: US)
  Receive Date: 20170922
  Receipt Date: 20171208
  Transmission Date: 20180321
  Serious: Yes (Hospitalization)
  Sender: FDA-Public Use
  Company Number: US-ACTELION-A-US2017-159753

PATIENT
  Age: 69 Year
  Sex: Female
  Weight: 69.84 kg

DRUGS (4)
  1. ADEMPAS [Concomitant]
     Active Substance: RIOCIGUAT
  2. REMODULIN [Concomitant]
     Active Substance: TREPROSTINIL
  3. ELIQUIS [Concomitant]
     Active Substance: APIXABAN
  4. OPSUMIT [Suspect]
     Active Substance: MACITENTAN
     Indication: PULMONARY ARTERIAL HYPERTENSION
     Dosage: 10 MG, QD
     Route: 048

REACTIONS (7)
  - Pneumonia [Unknown]
  - Atrial fibrillation [Unknown]
  - Fluid retention [Unknown]
  - Condition aggravated [Unknown]
  - Heart valve replacement [Unknown]
  - Post procedural complication [Unknown]
  - Chest pain [Unknown]
